FAERS Safety Report 14224550 (Version 2)
Quarter: 2017Q4

REPORT INFORMATION
  Report Type: Spontaneous
  Country: US (occurrence: US)
  Receive Date: 20171127
  Receipt Date: 20171219
  Transmission Date: 20180321
  Serious: Yes (Death, Other)
  Sender: FDA-Public Use
  Company Number: PHEH2017US038166

PATIENT
  Sex: Female

DRUGS (2)
  1. KISQALI [Suspect]
     Active Substance: RIBOCICLIB
     Indication: BREAST CANCER FEMALE
     Dosage: 600 MG, TID
     Route: 048
     Dates: start: 20171022
  2. KISQALI [Suspect]
     Active Substance: RIBOCICLIB
     Indication: BONE CANCER

REACTIONS (2)
  - Death [Fatal]
  - Drug ineffective [Unknown]
